FAERS Safety Report 9410166 (Version 7)
Quarter: 2013Q4

REPORT INFORMATION
  Report Type: Report from Study
  Country: CA (occurrence: CA)
  Receive Date: 20130719
  Receipt Date: 20131220
  Transmission Date: 20140711
  Serious: Yes (Death, Other)
  Sender: FDA-Public Use
  Company Number: CA-ROCHE-1223105

PATIENT
  Age: 47 Year
  Sex: Female
  Weight: 75 kg

DRUGS (7)
  1. AVASTIN [Suspect]
     Indication: GLIOBLASTOMA
     Route: 042
     Dates: start: 20130503
  2. AVASTIN [Suspect]
     Route: 042
     Dates: start: 20130627
  3. AVASTIN [Suspect]
     Route: 042
     Dates: start: 20130828, end: 20131010
  4. CLOBAZAM [Concomitant]
  5. KEPPRA [Concomitant]
  6. CCNU [Concomitant]
     Dosage: FIRST DOSE:28/MAR, TO BE REASSESSED AT 12 WEEKS
     Route: 065
     Dates: start: 20130328
  7. DECADRON [Concomitant]
     Route: 065
     Dates: start: 20130325

REACTIONS (12)
  - Death [Fatal]
  - Confusional state [Unknown]
  - Vision blurred [Not Recovered/Not Resolved]
  - Bone swelling [Unknown]
  - Nausea [Recovered/Resolved]
  - Fatigue [Not Recovered/Not Resolved]
  - Somnolence [Not Recovered/Not Resolved]
  - Dizziness [Not Recovered/Not Resolved]
  - Dysphonia [Not Recovered/Not Resolved]
  - Weight increased [Not Recovered/Not Resolved]
  - Blood test abnormal [Not Recovered/Not Resolved]
  - General physical health deterioration [Not Recovered/Not Resolved]
